FAERS Safety Report 8335317-1 (Version None)
Quarter: 2012Q2

REPORT INFORMATION
  Report Type: 
  Country: None (occurrence: None)
  Receive Date: 20120503
  Receipt Date: 20120501
  Transmission Date: 20120825
  Serious: Yes (Life-Threatening, Other)
  Sender: FDA-Public Use
  Company Number: PHHY2012IT011254

PATIENT
  Sex: Female

DRUGS (14)
  1. ONDANSETRON [Concomitant]
     Dosage: 8 MG, UNK
     Route: 042
  2. MINERAL TAB [Concomitant]
  3. TRIMETON [Concomitant]
     Dosage: 10 MG, UNK
     Route: 030
  4. SOLU-CORTEF [Concomitant]
     Dosage: 500 MG, UNK
  5. ALOE [Concomitant]
  6. PACLITAXEL [Suspect]
     Dosage: 360 MG, CYCLIC DOSE
     Dates: start: 20120215
  7. LEVOTHYROXINE SODIUM [Concomitant]
     Indication: AUTOIMMUNE THYROIDITIS
     Dosage: 50 UG, UNK
     Route: 048
  8. PACLITAXEL [Suspect]
     Indication: BREAST CANCER
     Dosage: 360 MG, CYCLIC DOSE
     Route: 042
     Dates: start: 20120104, end: 20120125
  9. RANIDIL [Concomitant]
     Dosage: 50 MG, UNK
     Route: 042
  10. TAXOL [Concomitant]
     Dosage: UNK
     Dates: start: 20120104
  11. MULTI-VITAMINS [Concomitant]
  12. SOLU-CORTEF [Concomitant]
     Dosage: 250 MG, UNK
     Route: 042
  13. DOXORUBICIN HCL [Concomitant]
     Dosage: 115 MG, UNK
     Route: 042
     Dates: start: 20120104, end: 20120125
  14. ADRIAMYCIN PFS [Concomitant]
     Dosage: UNK
     Dates: start: 20120104

REACTIONS (7)
  - BACK PAIN [None]
  - AGITATION [None]
  - LOSS OF CONSCIOUSNESS [None]
  - HEART RATE DECREASED [None]
  - DYSPNOEA [None]
  - BLOOD PRESSURE INCREASED [None]
  - FEELING HOT [None]
